FAERS Safety Report 6765522-7 (Version None)
Quarter: 2010Q2

REPORT INFORMATION
  Report Type: 
  Country: None (occurrence: None)
  Receive Date: 20100611
  Receipt Date: 20100607
  Transmission Date: 20101027
  Serious: Yes (Hospitalization)
  Sender: FDA-Public Use
  Company Number: DE-TEVA-220946ISR

PATIENT
  Sex: Female
  Weight: 57 kg

DRUGS (10)
  1. FLUOROURACIL [Suspect]
     Indication: COLORECTAL CANCER METASTATIC
     Route: 042
     Dates: start: 20091026, end: 20091215
  2. FOLINIC ACID [Suspect]
     Indication: COLORECTAL CANCER METASTATIC
     Route: 042
     Dates: start: 20091026, end: 20091214
  3. CETUXIMAB [Suspect]
     Indication: COLORECTAL CANCER METASTATIC
     Route: 042
     Dates: start: 20091026, end: 20091221
  4. IRINOTECAN HYDROCHLORIDE [Suspect]
     Indication: COLORECTAL CANCER METASTATIC
     Dates: start: 20091026, end: 20091214
  5. ONDANSETRON HYDROCHLORIDE [Concomitant]
     Dates: start: 20091026, end: 20091221
  6. APREPITANT [Concomitant]
     Dates: start: 20091026, end: 20091221
  7. DEXAMETHASONE PHOSPHATE [Concomitant]
     Dates: start: 20091026, end: 20091221
  8. RANITIDINE HYDROCHLORIDE [Concomitant]
     Dates: start: 20091026, end: 20091221
  9. DIMETINDENE MALEATE [Concomitant]
     Dates: start: 20091026, end: 20091221
  10. MAGNESIUM [Concomitant]

REACTIONS (1)
  - PNEUMOCYSTIS JIROVECI PNEUMONIA [None]
